FAERS Safety Report 19164210 (Version 1)
Quarter: 2021Q2

REPORT INFORMATION
  Report Type: Spontaneous
  Country: JP (occurrence: JP)
  Receive Date: 20210421
  Receipt Date: 20210421
  Transmission Date: 20210717
  Serious: Yes (Other)
  Sender: FDA-Public Use
  Company Number: JP-ROCHE-2814630

PATIENT
  Age: 8 Decade
  Sex: Female

DRUGS (2)
  1. ACTEMRA [Suspect]
     Active Substance: TOCILIZUMAB
     Indication: RHEUMATOID ARTHRITIS
     Route: 058
  2. KEVZARA [Suspect]
     Active Substance: SARILUMAB
     Indication: RHEUMATOID ARTHRITIS
     Dosage: DOSAGE IS UNCERTAIN.
     Route: 065

REACTIONS (1)
  - Blood glucose increased [Unknown]
